FAERS Safety Report 21967419 (Version 1)
Quarter: 2023Q1

REPORT INFORMATION
  Report Type: Spontaneous
  Country: FR (occurrence: FR)
  Receive Date: 20230208
  Receipt Date: 20230208
  Transmission Date: 20230417
  Serious: Yes (Hospitalization)
  Sender: FDA-Public Use
  Company Number: FR-MYLANLABS-2005015136

PATIENT
  Age: 86 Year
  Sex: Female

DRUGS (9)
  1. AMLODIPINE BESYLATE [Suspect]
     Active Substance: AMLODIPINE BESYLATE
     Indication: Ill-defined disorder
     Dosage: 5 MILLIGRAM
     Route: 048
     Dates: end: 20040402
  2. AMLODIPINE BESYLATE [Suspect]
     Active Substance: AMLODIPINE BESYLATE
     Dosage: UNK
     Route: 048
     Dates: end: 20040402
  3. FLECAINIDE [Suspect]
     Active Substance: FLECAINIDE
     Indication: Ill-defined disorder
     Dosage: UNK
     Route: 048
     Dates: end: 20040402
  4. ACETAMINOPHEN [Suspect]
     Active Substance: ACETAMINOPHEN
     Indication: Ill-defined disorder
     Dosage: 500 MILLIGRAM
     Route: 048
     Dates: end: 20040402
  5. ACETAMINOPHEN [Suspect]
     Active Substance: ACETAMINOPHEN
     Dosage: UNK
     Route: 048
     Dates: end: 20040402
  6. TROXERUTIN [Suspect]
     Active Substance: TROXERUTIN
     Indication: Ill-defined disorder
     Dosage: 3500 MILLIGRAM
     Route: 048
     Dates: end: 20040402
  7. TROXERUTIN [Suspect]
     Active Substance: TROXERUTIN
     Dosage: UNK
     Route: 048
     Dates: end: 20040402
  8. ASPIRIN DL-LYSINE [Suspect]
     Active Substance: ASPIRIN DL-LYSINE
     Indication: Ill-defined disorder
     Dosage: UNK
     Route: 048
     Dates: end: 20040402
  9. RAMIPRIL [Suspect]
     Active Substance: RAMIPRIL
     Indication: Ill-defined disorder
     Dosage: 1.25 MILLIGRAM
     Route: 048
     Dates: end: 20040402

REACTIONS (2)
  - Enterocolitis haemorrhagic [Recovered/Resolved]
  - Rectal haemorrhage [Recovered/Resolved]

NARRATIVE: CASE EVENT DATE: 20040402
